FAERS Safety Report 15772037 (Version 1)
Quarter: 2018Q4

REPORT INFORMATION
  Report Type: Spontaneous
  Country: US (occurrence: US)
  Receive Date: 20181228
  Receipt Date: 20181228
  Transmission Date: 20190205
  Serious: Yes (Hospitalization)
  Sender: FDA-Public Use
  Company Number: US-TEVA-2018-US-991833

PATIENT
  Sex: Female

DRUGS (1)
  1. TEVA ATENOLOL [Suspect]
     Active Substance: ATENOLOL
     Dates: start: 2015, end: 2015

REACTIONS (2)
  - Cardiac disorder [Unknown]
  - Product substitution issue [Unknown]

NARRATIVE: CASE EVENT DATE: 2015
